FAERS Safety Report 25382854 (Version 1)
Quarter: 2025Q2

REPORT INFORMATION
  Report Type: Spontaneous
  Country: IT (occurrence: IT)
  Receive Date: 20250602
  Receipt Date: 20250602
  Transmission Date: 20250717
  Serious: Yes (Life-Threatening, Hospitalization, Other)
  Sender: JOHNSON AND JOHNSON
  Company Number: None

PATIENT
  Age: 78 Year
  Sex: Male

DRUGS (1)
  1. ERLEADA [Suspect]
     Active Substance: APALUTAMIDE
     Indication: Prostate cancer stage IV
     Route: 048
     Dates: start: 20250307, end: 20250423

REACTIONS (5)
  - Febrile neutropenia [Recovered/Resolved]
  - Pyelonephritis acute [Recovering/Resolving]
  - Hyperpyrexia [Recovered/Resolved]
  - Urinary tract infection pseudomonal [Recovered/Resolved]
  - Atrial fibrillation [Not Recovered/Not Resolved]

NARRATIVE: CASE EVENT DATE: 20250423
